FAERS Safety Report 16789593 (Version 1)
Quarter: 2019Q3

REPORT INFORMATION
  Report Type: Spontaneous
  Country: DE (occurrence: DE)
  Receive Date: 20190910
  Receipt Date: 20190910
  Transmission Date: 20191005
  Serious: Yes (Congenital Anomaly)
  Sender: FDA-Public Use
  Company Number: DE-HETERO-2015HINSPO1038

PATIENT
  Age: 9 Month
  Sex: Male
  Weight: 4 kg

DRUGS (3)
  1. NOVOPULMON [Suspect]
     Active Substance: BUDESONIDE
     Indication: ASTHMA
     Dosage: 0.4 MG, BID
     Route: 064
     Dates: start: 20141011, end: 201507
  2. FENOTEROL HYDROBROMIDE W/IPRATROPIU/00616101/ [Concomitant]
     Active Substance: FENOTEROL HYDROBROMIDE\IPRATROPIUM BROMIDE
     Indication: ASTHMA
     Dosage: 500 MILLIGRAM, BID
     Route: 064
     Dates: start: 20141011, end: 201507
  3. LEVETIRACETAM. [Suspect]
     Active Substance: LEVETIRACETAM
     Indication: EPILEPSY
     Dosage: 500 MG, BID
     Route: 064
     Dates: start: 20141011, end: 201507

REACTIONS (3)
  - Pancreatic cyst [Not Recovered/Not Resolved]
  - Foetal exposure during pregnancy [Unknown]
  - Congenital hydronephrosis [Not Recovered/Not Resolved]

NARRATIVE: CASE EVENT DATE: 20141011
